FAERS Safety Report 25871689 (Version 1)
Quarter: 2025Q4

REPORT INFORMATION
  Report Type: Spontaneous
  Country: US (occurrence: US)
  Receive Date: 20251001
  Receipt Date: 20251001
  Transmission Date: 20260117
  Serious: Yes (Other)
  Sender: AMGEN
  Company Number: US-AMGEN-USASP2025194626

PATIENT

DRUGS (1)
  1. BEVACIZUMAB [Suspect]
     Active Substance: BEVACIZUMAB
     Indication: Retinopathy of prematurity
     Dosage: UNK
     Route: 065

REACTIONS (9)
  - Serous retinal detachment [Unknown]
  - Cataract [Unknown]
  - Vitreous haemorrhage [Unknown]
  - Iris adhesions [Unknown]
  - Endophthalmitis [Unknown]
  - Amblyopia [Unknown]
  - Strabismus [Unknown]
  - Pupillary deformity [Unknown]
  - Off label use [Unknown]
